FAERS Safety Report 14277376 (Version 3)
Quarter: 2020Q2

REPORT INFORMATION
  Report Type: Spontaneous
  Country: US (occurrence: US)
  Receive Date: 20171212
  Receipt Date: 20200616
  Transmission Date: 20200713
  Serious: Yes (Hospitalization)
  Sender: FDA-Public Use
  Company Number: US-PFIZER INC-2017530948

PATIENT
  Age: 72 Year
  Sex: Female

DRUGS (1)
  1. XELJANZ XR [Suspect]
     Active Substance: TOFACITINIB CITRATE
     Dosage: 11 MG, DAILY (1 TABLET DAILY)

REACTIONS (3)
  - Malaise [Unknown]
  - Gastrointestinal disorder [Unknown]
  - Hypersensitivity [Unknown]
